FAERS Safety Report 10713887 (Version 4)
Quarter: 2015Q3

REPORT INFORMATION
  Report Type: Report from Study
  Country: US (occurrence: US)
  Receive Date: 20150115
  Receipt Date: 20150916
  Transmission Date: 20151125
  Serious: Yes (Other)
  Sender: FDA-Public Use
  Company Number: US-SANOFI-AVENTIS-2013SA032724

PATIENT
  Age: 63 Year
  Sex: Female

DRUGS (1)
  1. AUBAGIO [Suspect]
     Active Substance: TERIFLUNOMIDE
     Indication: MULTIPLE SCLEROSIS
     Route: 048
     Dates: start: 20130308

REACTIONS (23)
  - Burning sensation [Unknown]
  - Feeling hot [Unknown]
  - Bone disorder [Unknown]
  - Insomnia [Unknown]
  - Headache [Unknown]
  - Shoulder operation [Unknown]
  - Fatigue [Unknown]
  - Meniscus injury [Unknown]
  - Bronchitis [Recovering/Resolving]
  - Pain [Unknown]
  - Skin mass [Unknown]
  - Hot flush [Unknown]
  - Spinal fracture [Unknown]
  - Knee operation [Unknown]
  - Contusion [Unknown]
  - Rash [Unknown]
  - Blood pressure increased [Unknown]
  - Alopecia [Not Recovered/Not Resolved]
  - Acne [Unknown]
  - Fall [Unknown]
  - Restless legs syndrome [Unknown]
  - Memory impairment [Unknown]
  - Pain in extremity [Unknown]

NARRATIVE: CASE EVENT DATE: 20150327
